FAERS Safety Report 8718047 (Version 2)
Quarter: 2014Q1

REPORT INFORMATION
  Report Type: Report from Study
  Country: CA (occurrence: CA)
  Receive Date: 20120810
  Receipt Date: 20140117
  Transmission Date: 20141002
  Serious: Yes (Other)
  Sender: FDA-Public Use
  Company Number: CA-JNJFOC-20120800735

PATIENT
  Age: 39 Year
  Sex: Male
  Weight: 75 kg

DRUGS (5)
  1. REMICADE [Suspect]
     Indication: CROHN^S DISEASE
     Route: 042
     Dates: start: 20120718
  2. REMICADE [Suspect]
     Indication: CROHN^S DISEASE
     Dosage: 2ND INFUSION
     Route: 042
     Dates: start: 20120730, end: 20120730
  3. BENADRYL [Concomitant]
     Indication: PREMEDICATION
     Route: 065
     Dates: start: 201207, end: 20120730
  4. SOLU-CORTEF [Concomitant]
     Indication: PREMEDICATION
     Route: 065
     Dates: start: 201207, end: 20120730
  5. TYLENOL [Concomitant]
     Indication: PREMEDICATION
     Route: 065
     Dates: start: 201207, end: 20120730

REACTIONS (5)
  - Back pain [Recovered/Resolved]
  - Anxiety [Recovered/Resolved]
  - Chills [Recovered/Resolved]
  - Infusion related reaction [Recovered/Resolved]
  - Dyspnoea [Recovered/Resolved]
